FAERS Safety Report 16314391 (Version 2)
Quarter: 2019Q2

REPORT INFORMATION
  Report Type: Spontaneous
  Country: US (occurrence: US)
  Receive Date: 20190515
  Receipt Date: 20190515
  Transmission Date: 20190711
  Serious: Yes (Life-Threatening, Hospitalization)
  Sender: FDA-Public Use
  Company Number: US-BAYER-2019-089281

PATIENT
  Age: 73 Year
  Sex: Female

DRUGS (1)
  1. GADOBUTROL. [Suspect]
     Active Substance: GADOBUTROL
     Indication: EPIDURAL INJECTION
     Dosage: 1.5 ML, ONCE
     Route: 037

REACTIONS (8)
  - Off label use [None]
  - Obstructive airways disorder [None]
  - Contrast media deposition [None]
  - Vomiting [None]
  - Incorrect route of product administration [None]
  - Product use in unapproved indication [None]
  - Seizure [None]
  - Altered state of consciousness [None]
